FAERS Safety Report 13297944 (Version 3)
Quarter: 2017Q2

REPORT INFORMATION
  Report Type: Spontaneous
  Country: US (occurrence: US)
  Receive Date: 20170306
  Receipt Date: 20170424
  Transmission Date: 20170830
  Serious: No
  Sender: FDA-Public Use
  Company Number: US-009507513-1702USA010455

PATIENT
  Age: 70 Year
  Sex: Female

DRUGS (2)
  1. TEMODAR [Suspect]
     Active Substance: TEMOZOLOMIDE
     Indication: RECTAL CANCER METASTATIC
     Dosage: 150 MG PER MILLIMETER SQUARED ON DAYS ONE TO FIVE
     Route: 048
  2. TEMODAR [Suspect]
     Active Substance: TEMOZOLOMIDE
     Dosage: 150 MG PER MILLIMETER SQUARED ON DAYS ONE TO FIVE
     Route: 048

REACTIONS (1)
  - Off label use [Unknown]
